FAERS Safety Report 8173329-1 (Version None)
Quarter: 2012Q1

REPORT INFORMATION
  Report Type: 
  Country: None (occurrence: None)
  Receive Date: 20120229
  Receipt Date: 20120227
  Transmission Date: 20120608
  Serious: No
  Sender: FDA-Public Use
  Company Number: US-PFIZER INC-2012051770

PATIENT
  Sex: Female
  Weight: 86.168 kg

DRUGS (1)
  1. ADVIL COLD AND SINUS [Suspect]
     Indication: NASOPHARYNGITIS
     Dosage: 400/60 MG(TWO OF 200/30MG), 1X/DAY
     Route: 048

REACTIONS (4)
  - INSOMNIA [None]
  - DYSKINESIA [None]
  - MUSCULOSKELETAL STIFFNESS [None]
  - FEELING JITTERY [None]
